FAERS Safety Report 6873016-3 (Version None)
Quarter: 2010Q3

REPORT INFORMATION
  Report Type: 
  Country: None (occurrence: None)
  Receive Date: 20100723
  Receipt Date: 20090211
  Transmission Date: 20110219
  Serious: No
  Sender: FDA-Public Use
  Company Number: US-PFIZER INC-2008097371

PATIENT
  Sex: Male
  Weight: 84.1 kg

DRUGS (1)
  1. CHANTIX [Suspect]
     Indication: SMOKING CESSATION THERAPY
     Dosage: UNK
     Dates: start: 20070404, end: 20070704

REACTIONS (14)
  - ABNORMAL BEHAVIOUR [None]
  - BACK PAIN [None]
  - BODY HEIGHT DECREASED [None]
  - DEPRESSION [None]
  - DRY EYE [None]
  - EYE IRRITATION [None]
  - IRRITABILITY [None]
  - LAZINESS [None]
  - LIMB DISCOMFORT [None]
  - MEMORY IMPAIRMENT [None]
  - MENTAL IMPAIRMENT [None]
  - MOOD SWINGS [None]
  - SCREAMING [None]
  - TOBACCO USER [None]
